FAERS Safety Report 21760050 (Version 1)
Quarter: 2022Q4

REPORT INFORMATION
  Report Type: Spontaneous
  Country: CN (occurrence: CN)
  Receive Date: 20221221
  Receipt Date: 20221221
  Transmission Date: 20230112
  Serious: Yes (Other)
  Sender: FDA-Public Use
  Company Number: CN-Merck Healthcare KGaA-9372825

PATIENT
  Age: 86 Year
  Sex: Male
  Weight: 56 kg

DRUGS (5)
  1. ERBITUX [Suspect]
     Active Substance: CETUXIMAB
     Indication: Squamous cell carcinoma
     Dosage: 600 MG, DAILY
     Route: 041
     Dates: start: 20221123, end: 20221123
  2. ERBITUX [Suspect]
     Active Substance: CETUXIMAB
     Dosage: 300 MG, DAILY
     Route: 041
     Dates: start: 20221130, end: 20221130
  3. CARBOPLATIN [Suspect]
     Active Substance: CARBOPLATIN
     Indication: Squamous cell carcinoma
     Dosage: 300 MG, DAILY
     Route: 041
     Dates: start: 20221125, end: 20221125
  4. PACLITAXEL [Suspect]
     Active Substance: PACLITAXEL
     Indication: Squamous cell carcinoma
     Dosage: 200 MG, DAILY
     Route: 041
     Dates: start: 20221124, end: 20221124
  5. PACLITAXEL [Suspect]
     Active Substance: PACLITAXEL
     Dosage: 180 MG, DAILY
     Route: 041
     Dates: start: 20221202, end: 20221202

REACTIONS (1)
  - White blood cell count decreased [Recovering/Resolving]

NARRATIVE: CASE EVENT DATE: 20221207
